FAERS Safety Report 7875036-9 (Version None)
Quarter: 2011Q4

REPORT INFORMATION
  Report Type: 
  Country: None (occurrence: None)
  Receive Date: 20111003
  Receipt Date: 20110208
  Transmission Date: 20120403
  Serious: Yes (Other)
  Sender: FDA-Public Use
  Company Number: 266348USA

PATIENT
  Sex: Female

DRUGS (1)
  1. VENLAFAXINE HYDROCHLORIDE [Suspect]
     Dosage: 75 MG, ORAL
     Route: 048

REACTIONS (19)
  - IMPAIRED DRIVING ABILITY [None]
  - CRYING [None]
  - LISTLESS [None]
  - DYSSTASIA [None]
  - HYPERSOMNIA [None]
  - MEMORY IMPAIRMENT [None]
  - FALL [None]
  - PAIN [None]
  - VOMITING [None]
  - EXERCISE TOLERANCE DECREASED [None]
  - DIZZINESS [None]
  - WITHDRAWAL SYNDROME [None]
  - DYSPNOEA [None]
  - HEADACHE [None]
  - APATHY [None]
  - THERAPEUTIC RESPONSE UNEXPECTED WITH DRUG SUBSTITUTION [None]
  - CONFUSIONAL STATE [None]
  - DIARRHOEA [None]
  - ABDOMINAL PAIN [None]
